FAERS Safety Report 7964963-X (Version None)
Quarter: 2011Q4

REPORT INFORMATION
  Report Type: 
  Country: None (occurrence: None)
  Receive Date: 20111206
  Receipt Date: 20111206
  Transmission Date: 20120403
  Serious: Yes (Death)
  Sender: FDA-Public Use
  Company Number: None

PATIENT
  Age: 72 Year
  Sex: Male

DRUGS (1)
  1. ARSENIC TRIOXIDE [Suspect]
     Dosage: 15 MG TWICE A WEEK
     Dates: start: 20110908, end: 20111001

REACTIONS (1)
  - DEATH [None]
